FAERS Safety Report 7076595-9 (Version None)
Quarter: 2010Q4

REPORT INFORMATION
  Report Type: 
  Country: None (occurrence: None)
  Receive Date: 20101101
  Receipt Date: 20101020
  Transmission Date: 20110411
  Serious: Yes (Other)
  Sender: FDA-Public Use
  Company Number: DE-PFIZER INC-2010113273

PATIENT
  Age: 36 Year
  Sex: Female
  Weight: 57 kg

DRUGS (4)
  1. LYRICA [Suspect]
     Indication: DEPRESSION
     Dosage: 150 MG, 2X/DAY
     Route: 048
     Dates: start: 20080801
  2. CIPRAMIL [Concomitant]
     Indication: DEPRESSION
     Dosage: 4 G, DAILY
     Dates: start: 20080801, end: 20100401
  3. CIPRAMIL [Concomitant]
     Dosage: 6 G, DAILY
     Route: 048
     Dates: start: 20100501
  4. VALETTE [Concomitant]
     Indication: CONTRACEPTION
     Dosage: UNK

REACTIONS (2)
  - OVARIAN CYST [None]
  - OVARIAN CYST RUPTURED [None]
